FAERS Safety Report 5308018-1 (Version None)
Quarter: 2007Q1

REPORT INFORMATION
  Report Type: 
  Country: None (occurrence: None)
  Receive Date: 20070130
  Receipt Date: 20040518
  Transmission Date: 20070707
  Serious: Yes (Other)
  Sender: FDA-Public Use
  Company Number: 355402

PATIENT
  Sex: Female
  Weight: 7.7 kg

DRUGS (2)
  1. COPEGUS [Suspect]
     Indication: HEPATITIS C VIRUS
     Dosage: ORAL
     Route: 048
     Dates: start: 20030415, end: 20030425
  2. PEGASYS [Concomitant]

REACTIONS (1)
  - PREMATURE BABY [None]
